FAERS Safety Report 4642693-X (Version None)
Quarter: 2005Q2

REPORT INFORMATION
  Report Type: 
  Country: None (occurrence: None)
  Receive Date: 20050420
  Receipt Date: 20050411
  Transmission Date: 20051028
  Serious: Yes (Other)
  Sender: FDA-Public Use
  Company Number: 2005-04-0284

PATIENT
  Age: 56 Year
  Sex: Male
  Weight: 54 kg

DRUGS (6)
  1. INTRON A [Suspect]
     Indication: HEPATITIS C
     Dosage: 10-6 MU INTRAMUSCULAR; 10 MU INTRAMUSCULAR; 6 MU INTRAMUSCULAR
     Route: 030
     Dates: start: 20050308, end: 20050324
  2. INTRON A [Suspect]
     Indication: HEPATITIS C
     Dosage: 10-6 MU INTRAMUSCULAR; 10 MU INTRAMUSCULAR; 6 MU INTRAMUSCULAR
     Route: 030
     Dates: start: 20050308
  3. INTRON A [Suspect]
     Indication: HEPATITIS C
     Dosage: 10-6 MU INTRAMUSCULAR; 10 MU INTRAMUSCULAR; 6 MU INTRAMUSCULAR
     Route: 030
     Dates: start: 20050330
  4. REBETOL [Suspect]
     Indication: HEPATITIS C
     Dosage: 600 MG ORAL
     Route: 048
     Dates: start: 20050308, end: 20050324
  5. REBETOL [Suspect]
     Indication: HEPATITIS C
     Dosage: 600 MG ORAL
     Route: 048
     Dates: start: 20050308
  6. REBETOL [Suspect]
     Indication: HEPATITIS C
     Dosage: 600 MG ORAL
     Route: 048
     Dates: start: 20050330

REACTIONS (4)
  - FAECAL INCONTINENCE [None]
  - HYPOAESTHESIA [None]
  - PLATELET COUNT DECREASED [None]
  - URINARY INCONTINENCE [None]
